FAERS Safety Report 4954488-8 (Version None)
Quarter: 2006Q1

REPORT INFORMATION
  Report Type: 
  Country: None (occurrence: None)
  Receive Date: 20060321
  Receipt Date: 20060309
  Transmission Date: 20060701
  Serious: Yes (Hospitalization)
  Sender: FDA-Public Use
  Company Number: EM2006-0115

PATIENT
  Age: 30 Year
  Sex: Male
  Weight: 83 kg

DRUGS (7)
  1. MACROLIN [Suspect]
     Indication: HIV INFECTION
     Dosage: SEE IMAGE
     Dates: start: 20041105, end: 20041109
  2. MACROLIN [Suspect]
     Indication: HIV INFECTION
     Dosage: SEE IMAGE
     Dates: start: 20050110, end: 20050114
  3. MACROLIN [Suspect]
     Indication: HIV INFECTION
     Dosage: SEE IMAGE
     Dates: start: 20050304, end: 20050308
  4. MACROLIN [Suspect]
     Indication: HIV INFECTION
     Dosage: SEE IMAGE
     Dates: start: 20040910, end: 20050914
  5. MACROLIN [Suspect]
     Indication: HIV INFECTION
     Dosage: SEE IMAGE
     Dates: start: 20051007, end: 20051011
  6. MACROLIN [Suspect]
     Indication: HIV INFECTION
     Dosage: SEE IMAGE
     Dates: start: 20051202, end: 20051206
  7. MACROLIN [Suspect]

REACTIONS (10)
  - ADENOPATHY SYPHILITIC [None]
  - BLOOD CHLORIDE INCREASED [None]
  - DISEASE RECURRENCE [None]
  - HEADACHE [None]
  - HEPATOMEGALY [None]
  - NIGHT SWEATS [None]
  - POST LUMBAR PUNCTURE SYNDROME [None]
  - PYREXIA [None]
  - SPLENOMEGALY [None]
  - SYPHILIS [None]
